FAERS Safety Report 4881959-5 (Version None)
Quarter: 2006Q1

REPORT INFORMATION
  Report Type: 
  Country: None (occurrence: None)
  Receive Date: 20060117
  Receipt Date: 20050928
  Transmission Date: 20060701
  Serious: Yes (Other)
  Sender: FDA-Public Use
  Company Number: FR-GLAXOSMITHKLINE-B0396368A

PATIENT
  Age: 51 Year
  Sex: Female
  Weight: 63 kg

DRUGS (3)
  1. ROPINIROLE [Suspect]
     Indication: RESTLESS LEGS SYNDROME
     Route: 048
     Dates: start: 20050918
  2. PROZAC [Concomitant]
     Indication: FIBROMYALGIA
     Dosage: 1TAB PER DAY
     Route: 048
     Dates: start: 20050301, end: 20050901
  3. MOTILIUM [Concomitant]
     Route: 048
     Dates: start: 20050918, end: 20050926

REACTIONS (3)
  - AMNESIA [None]
  - EYE MOVEMENT DISORDER [None]
  - SLEEP ATTACKS [None]
